FAERS Safety Report 11910951 (Version 1)
Quarter: 2016Q1

REPORT INFORMATION
  Report Type: Spontaneous
  Country: US (occurrence: US)
  Receive Date: 20160112
  Receipt Date: 20160112
  Transmission Date: 20160526
  Serious: Yes (Death)
  Sender: FDA-Public Use
  Company Number: US-B. BRAUN MEDICAL INC.-1046395

PATIENT
  Age: 24 Year
  Sex: Female

DRUGS (13)
  1. 0.9% SODIUM CHLORIDE INJECTION [Suspect]
     Active Substance: SODIUM CHLORIDE
     Dates: start: 20131118
  2. PIPERACILLIN, TAZOBACTAM [Suspect]
     Active Substance: PIPERACILLIN SODIUM\TAZOBACTAM SODIUM
     Dates: start: 20131118
  3. CEFTRIAXONE. [Suspect]
     Active Substance: CEFTRIAXONE
     Dates: start: 20131118
  4. METRONIDAZOLE. [Suspect]
     Active Substance: METRONIDAZOLE
     Dates: start: 20131118
  5. POSIFLUSH (HEPARIN SODIUM) [Suspect]
     Active Substance: HEPARIN SODIUM
  6. ZOFRAN [Suspect]
     Active Substance: ONDANSETRON HYDROCHLORIDE
     Dates: start: 20131118
  7. BENADRYL [Suspect]
     Active Substance: DIPHENHYDRAMINE HYDROCHLORIDE
     Dates: start: 20131118
  8. DEXTROSE 5% [Suspect]
     Active Substance: DEXTROSE
     Dates: start: 20131118
  9. 1/2 NS [Suspect]
     Active Substance: SODIUM CHLORIDE
     Dates: start: 20131118
  10. MAGNESIUM SULFATE. [Suspect]
     Active Substance: MAGNESIUM SULFATE
     Dates: start: 20131118
  11. CIPRO [Suspect]
     Active Substance: CIPROFLOXACIN HYDROCHLORIDE
     Dates: start: 20131118
  12. POSIFLUSH (SODIUM CHLORIDE) [Suspect]
     Active Substance: SODIUM CHLORIDE
     Dates: start: 20131118
  13. DILAUDID [Suspect]
     Active Substance: HYDROMORPHONE HYDROCHLORIDE
     Dates: start: 20131118

REACTIONS (5)
  - Pulmonary embolism [None]
  - Death [None]
  - Acute respiratory distress syndrome [None]
  - Hypotension [None]
  - Foreign body embolism [None]
